FAERS Safety Report 21844835 (Version 2)
Quarter: 2023Q1

REPORT INFORMATION
  Report Type: Spontaneous
  Country: US (occurrence: None)
  Receive Date: 20230110
  Receipt Date: 20230117
  Transmission Date: 20230418
  Serious: Yes (Other)
  Sender: FDA-Public Use
  Company Number: 2023A002666

PATIENT

DRUGS (1)
  1. BUDESONIDE\FORMOTEROL\GLYCOPYRRONIUM [Suspect]
     Active Substance: BUDESONIDE\FORMOTEROL\GLYCOPYRRONIUM
     Dosage: 160 MCG/9 MCG/4.8 MCG, 2 PUFFS
     Route: 055

REACTIONS (5)
  - Interstitial lung disease [Unknown]
  - Lung disorder [Unknown]
  - Wheezing [Unknown]
  - Dyslexia [Unknown]
  - Loss of personal independence in daily activities [Unknown]
